FAERS Safety Report 9437613 (Version 1)
Quarter: 2013Q3

REPORT INFORMATION
  Report Type: Spontaneous
  Country: BR (occurrence: BR)
  Receive Date: 20130802
  Receipt Date: 20130802
  Transmission Date: 20140515
  Serious: Yes (Life-Threatening, Hospitalization, Other)
  Sender: FDA-Public Use
  Company Number: BR-PFIZER INC-2013223814

PATIENT
  Sex: Female

DRUGS (1)
  1. DEPO-PROVERA [Suspect]
     Indication: CONTRACEPTION
     Dosage: 150 MG, EVERY 3 MONTHS
     Dates: start: 20110908, end: 20120606

REACTIONS (4)
  - Foetal death [Unknown]
  - Drug ineffective [Unknown]
  - Unintended pregnancy [Unknown]
  - Drug prescribing error [Unknown]
